FAERS Safety Report 10861370 (Version 2)
Quarter: 2015Q1

REPORT INFORMATION
  Report Type: Report from Study
  Country: CA (occurrence: CA)
  Receive Date: 20150224
  Receipt Date: 20150318
  Transmission Date: 20150721
  Serious: Yes (Death, Hospitalization, Other)
  Sender: FDA-Public Use
  Company Number: CA-JNJFOC-20150212196

PATIENT
  Sex: Female
  Weight: 62 kg

DRUGS (1)
  1. REMICADE [Suspect]
     Active Substance: INFLIXIMAB
     Indication: CROHN^S DISEASE
     Dosage: 300
     Route: 042
     Dates: start: 20140915, end: 20141027

REACTIONS (6)
  - Death [Fatal]
  - Small intestinal haemorrhage [Unknown]
  - Epstein-Barr virus infection [Unknown]
  - Multi-organ failure [Unknown]
  - Intestinal ischaemia [Unknown]
  - Histiocytosis haematophagic [Unknown]

NARRATIVE: CASE EVENT DATE: 2014
